FAERS Safety Report 10020916 (Version 2)
Quarter: 2014Q1

REPORT INFORMATION
  Report Type: Report from Study
  Country: ZA (occurrence: ZA)
  Receive Date: 20140319
  Receipt Date: 20140319
  Transmission Date: 20141002
  Serious: Yes (Hospitalization, Other)
  Sender: FDA-Public Use
  Company Number: ZA-SA-200818826GDDC

PATIENT
  Age: 54 Year
  Sex: Female
  Weight: 37.5 kg

DRUGS (7)
  1. RIFAMPICIN [Suspect]
     Indication: TUBERCULOSIS
     Dates: start: 20080721, end: 20080916
  2. ISONIAZID [Suspect]
     Indication: TUBERCULOSIS
     Dates: start: 20080721, end: 20080916
  3. PYRAZINAMIDE [Suspect]
     Indication: TUBERCULOSIS
     Dates: start: 20080721, end: 20080916
  4. BLINDED THERAPY [Suspect]
     Indication: TUBERCULOSIS
     Dates: start: 20080721, end: 20080916
  5. BLINDED THERAPY [Suspect]
     Indication: TUBERCULOSIS
     Dates: start: 20080721, end: 20080816
  6. RIDAQ [Concomitant]
     Dosage: DOSE AS USED: 12.5/25 MG
     Route: 048
     Dates: start: 200805
  7. NORVASC /GRC/ [Concomitant]
     Dosage: DOSE AS USED: 5-10 MG
     Route: 048
     Dates: start: 200805

REACTIONS (2)
  - Diabetes mellitus [Recovering/Resolving]
  - Hepatic enzyme increased [Recovered/Resolved]
